FAERS Safety Report 8362280-X (Version None)
Quarter: 2012Q2

REPORT INFORMATION
  Report Type: 
  Country: None (occurrence: None)
  Receive Date: 20120515
  Receipt Date: 20120503
  Transmission Date: 20120825
  Serious: Yes (Hospitalization)
  Sender: FDA-Public Use
  Company Number: ES-ELI_LILLY_AND_COMPANY-ES201204002406

PATIENT
  Sex: Female
  Weight: 57 kg

DRUGS (14)
  1. FORTEO [Suspect]
     Indication: OSTEOPOROSIS
     Dosage: 20 UG, QD
     Route: 058
     Dates: start: 20120321, end: 20120417
  2. QUINAPRIL HCL AND HYDROCHLOROTHIAZIDE [Concomitant]
     Indication: HYPERTENSION
     Dosage: 20 MG, QD
     Route: 048
  3. FORTEO [Suspect]
     Dosage: 20 UG, QD
     Route: 058
     Dates: start: 20120427
  4. ANALGESICS [Concomitant]
     Indication: PAIN
     Dosage: UNK, PRN
     Route: 048
  5. OPIUM/NALOXONE TAB [Concomitant]
     Dosage: 5 MG, QD
     Route: 048
  6. OMEPRAZOLE [Concomitant]
     Indication: GASTRIC DISORDER
     Dosage: 1 DF, QD
     Route: 048
  7. OPIUM/NALOXONE TAB [Concomitant]
     Indication: PAIN
     Dosage: 5 MG, BID
     Route: 048
  8. SERC                               /00034201/ [Concomitant]
     Indication: VERTIGO
     Dosage: 16 MG, QD
     Route: 048
  9. NEUROTIN                           /00949202/ [Concomitant]
     Dosage: 1 DF, QD
     Route: 048
  10. GABAPENTINA KERN [Concomitant]
     Indication: PAIN
     Dosage: 300 MG, QD
     Route: 048
  11. ENANTYUM [Concomitant]
     Indication: PAIN
     Dosage: 1 DF, BID
     Route: 048
  12. ADALAT [Concomitant]
     Indication: HYPERTENSION
     Dosage: 1 DF, QD
     Route: 048
  13. TRAMADOL HYDROCHLORIDE AND ACETAMINOPHEN [Concomitant]
     Indication: PAIN
     Dosage: 1 DF, EVERY 8 HRS
     Route: 048
  14. LORAZEPAM [Concomitant]
     Indication: INSOMNIA
     Dosage: 1 DF, QD
     Route: 048

REACTIONS (5)
  - ABDOMINAL DISCOMFORT [None]
  - ABDOMINAL PAIN [None]
  - LUMBAR VERTEBRAL FRACTURE [None]
  - RENAL CYST [None]
  - ABDOMINAL DISTENSION [None]
